FAERS Safety Report 23402080 (Version 2)
Quarter: 2024Q2

REPORT INFORMATION
  Report Type: Report from Study
  Country: US (occurrence: None)
  Receive Date: 20240115
  Receipt Date: 20240409
  Transmission Date: 20240716
  Serious: Yes (Hospitalization)
  Sender: FDA-Public Use
  Company Number: 2024A009281

PATIENT
  Age: 86 Year
  Sex: Female

DRUGS (5)
  1. BREZTRI [Suspect]
     Active Substance: BUDESONIDE\FORMOTEROL\GLYCOPYRROLATE
     Route: 055
  2. ALBUTEROL [Concomitant]
     Active Substance: ALBUTEROL
     Route: 055
  3. ALBUTEROL [Concomitant]
     Active Substance: ALBUTEROL
     Route: 055
  4. IPRATROPIUM [Concomitant]
     Active Substance: IPRATROPIUM
  5. PREDNISONE [Concomitant]
     Active Substance: PREDNISONE
     Route: 048

REACTIONS (7)
  - Fall [Unknown]
  - Oedema [Unknown]
  - Muscle spasms [Recovered/Resolved]
  - Renal impairment [Unknown]
  - Chronic obstructive pulmonary disease [Unknown]
  - Back pain [Unknown]
  - Anxiety [Unknown]
